FAERS Safety Report 11442269 (Version 4)
Quarter: 2016Q1

REPORT INFORMATION
  Report Type: Other
  Country: GB (occurrence: GB)
  Receive Date: 20150901
  Receipt Date: 20160304
  Transmission Date: 20160525
  Serious: Yes (Other)
  Sender: FDA-Public Use
  Company Number: GB-ENDO PHARMACEUTICALS INC-2015-002610

PATIENT
  Age: 69 Year
  Sex: Male

DRUGS (5)
  1. XIAPEX [Suspect]
     Active Substance: COLLAGENASE CLOSTRIDIUM HISTOLYTICUM
     Indication: DUPUYTREN^S CONTRACTURE
     Route: 026
     Dates: start: 20150226, end: 20150226
  2. XIAPEX [Suspect]
     Active Substance: COLLAGENASE CLOSTRIDIUM HISTOLYTICUM
     Route: 026
     Dates: start: 2012, end: 2012
  3. PREDNISOLONE. [Concomitant]
     Active Substance: PREDNISOLONE
     Indication: PULMONARY SARCOIDOSIS
     Route: 065
  4. PANTOPRAZOLE [Concomitant]
     Active Substance: PANTOPRAZOLE SODIUM
     Indication: BARRETT^S OESOPHAGUS
     Route: 065
  5. ALENDRONIC ACID [Concomitant]
     Active Substance: ALENDRONIC ACID
     Indication: BARRETT^S OESOPHAGUS
     Dosage: 70MG ONCE A WEEK
     Route: 065

REACTIONS (6)
  - Contusion [Recovered/Resolved]
  - Laceration [Recovered/Resolved]
  - Lymphangitis [Recovered/Resolved]
  - Blood blister [Recovered/Resolved]
  - Skin exfoliation [Recovered/Resolved]
  - Pain in extremity [Recovering/Resolving]

NARRATIVE: CASE EVENT DATE: 20150226
